FAERS Safety Report 11516298 (Version 3)
Quarter: 2015Q4

REPORT INFORMATION
  Report Type: Spontaneous
  Country: US (occurrence: US)
  Receive Date: 20150917
  Receipt Date: 20151123
  Transmission Date: 20160304
  Serious: No
  Sender: FDA-Public Use
  Company Number: US-ASTRAZENECA-2015SE87022

PATIENT
  Sex: Female

DRUGS (2)
  1. PROAIR HFA [Concomitant]
     Active Substance: ALBUTEROL SULFATE
     Indication: INHALATION THERAPY
     Route: 055
  2. PULMICORT FLEXHALER [Suspect]
     Active Substance: BUDESONIDE
     Dosage: 90 MCG 165 MG, TWO TIMES A DAY
     Route: 055

REACTIONS (5)
  - Lung disorder [Unknown]
  - Product quality issue [Unknown]
  - Device malfunction [Unknown]
  - Intentional product misuse [Unknown]
  - Drug ineffective [Unknown]
